FAERS Safety Report 5018823-7 (Version None)
Quarter: 2006Q2

REPORT INFORMATION
  Report Type: 
  Country: None (occurrence: None)
  Receive Date: 20060531
  Receipt Date: 20060523
  Transmission Date: 20061013
  Serious: Yes (Other)
  Sender: FDA-Public Use
  Company Number: 2006067411

PATIENT
  Age: 2 Year
  Sex: Male

DRUGS (1)
  1. NATURAL CITRUS LISTERINE (MENTHOL, METHYL SALICYLATE, EUCALYPTOL, THYM [Suspect]
     Indication: ACCIDENTAL EXPOSURE
     Dosage: LESS THAN 1/2 CUP ONCE, ORAL
     Route: 048
     Dates: start: 20060523, end: 20060523

REACTIONS (2)
  - ACCIDENTAL DRUG INTAKE BY CHILD [None]
  - GENERAL PHYSICAL CONDITION ABNORMAL [None]
